FAERS Safety Report 22890418 (Version 4)
Quarter: 2023Q4

REPORT INFORMATION
  Report Type: Spontaneous
  Country: US (occurrence: US)
  Receive Date: 20230831
  Receipt Date: 20231123
  Transmission Date: 20240110
  Serious: Yes (Hospitalization, Other)
  Sender: FDA-Public Use
  Company Number: US-BRISTOL-MYERS SQUIBB COMPANY-2023-122879

PATIENT
  Age: 77 Year
  Sex: Male
  Weight: 70.31 kg

DRUGS (53)
  1. POMALYST [Suspect]
     Active Substance: POMALIDOMIDE
     Indication: Plasma cell myeloma
     Dosage: 3WKSON,1WKOFF
     Route: 048
     Dates: start: 201801
  2. POMALYST [Suspect]
     Active Substance: POMALIDOMIDE
     Dates: start: 202103
  3. POMALYST [Suspect]
     Active Substance: POMALIDOMIDE
     Dates: start: 20230810
  4. POMALYST [Suspect]
     Active Substance: POMALIDOMIDE
     Route: 048
  5. DARZALEX [Suspect]
     Active Substance: DARATUMUMAB
     Indication: Product used for unknown indication
     Dates: start: 201712
  6. NINLARO [Suspect]
     Active Substance: IXAZOMIB CITRATE
     Indication: Product used for unknown indication
     Dates: start: 202107
  7. DEXAMETHASONE [Suspect]
     Active Substance: DEXAMETHASONE
     Indication: Product used for unknown indication
     Dates: start: 201712
  8. PACERONE [Concomitant]
     Active Substance: AMIODARONE HYDROCHLORIDE
     Indication: Product used for unknown indication
     Route: 048
     Dates: start: 20230926, end: 20231011
  9. OMNICEF [Concomitant]
     Active Substance: CEFDINIR
     Indication: Product used for unknown indication
     Dosage: TAKE ONE CAPSULE BY MOUTH ONCE DAILY ON MONDAY TUESDAY WEDNESDAY AND FRIDAY FOR 7 DAYS.ALSO TAKE 1 C
     Route: 048
     Dates: start: 20230927, end: 20231004
  10. FLAGYL [Concomitant]
     Active Substance: METRONIDAZOLE\METRONIDAZOLE HYDROCHLORIDE
     Indication: Product used for unknown indication
     Dosage: TAKE ONE TABLET BY MOUTH EVERY 8 HOURS FOR 8 DAYS
     Route: 048
     Dates: start: 20230926, end: 20231004
  11. RENVELA [Concomitant]
     Active Substance: SEVELAMER CARBONATE
     Indication: Product used for unknown indication
     Dosage: TAKE 2 TABLET BY MOUTH 3 TIMES DAILY WITH MEALS
     Route: 048
     Dates: start: 20230926, end: 20231011
  12. RENVELA [Concomitant]
     Active Substance: SEVELAMER CARBONATE
     Dosage: 3 TIMES DAILY WITH MEALS
     Route: 048
  13. MEPRON [Concomitant]
     Active Substance: ATOVAQUONE
     Indication: Product used for unknown indication
     Dosage: 750 MG /5ML TAKE WITH FOOD?PATIENT TAKING DIFFERENTLY: TAKE 1500 MG BY MOUTH EVERY EVENING TAKE WITH
     Route: 048
     Dates: start: 20230404
  14. PROSCAR [Concomitant]
     Active Substance: FINASTERIDE
     Indication: Product used for unknown indication
     Dosage: TAKE ONE TABLET BY MOUTH ONCE DAILY PATIENT TAKING DIFFRENETLY TAKE 5MG BY MOUTH
     Route: 048
     Dates: start: 20221122
  15. MORPHINE SULFATE [Concomitant]
     Active Substance: MORPHINE SULFATE
     Indication: Pain
     Dosage: AS NEEDED
     Route: 048
     Dates: start: 20230809
  16. TYLENOL [Concomitant]
     Active Substance: ACETAMINOPHEN
     Indication: Pain
     Dosage: TAKE 2 TABLETS BY MOUTH EVERY 6 HRS AS NEEDED FOR PAIN
     Route: 048
  17. TYLENOL [Concomitant]
     Active Substance: ACETAMINOPHEN
     Dosage: EVERY 6 HRS PRN
     Route: 048
  18. TYLENOL [Concomitant]
     Active Substance: ACETAMINOPHEN
  19. ZOVIRAX [Concomitant]
     Active Substance: ACYCLOVIR
     Indication: Product used for unknown indication
     Dosage: TAKE ONE TABLET BY MOUTH 2 TIMES DAILY
     Route: 048
     Dates: start: 20230804
  20. ASPIRIN [Concomitant]
     Active Substance: ASPIRIN
     Indication: Product used for unknown indication
     Dosage: TAKE ONE TABLET BY MOUTH EVERY EVENING
     Route: 048
  21. LIPITOR [Concomitant]
     Active Substance: ATORVASTATIN CALCIUM
     Indication: Product used for unknown indication
     Dosage: TAKE ONE TABELT BY MOUTH EVERY EVENING
     Route: 048
  22. NEPHRO-VITE [ASCORBIC ACID;BIOTIN;CYANOCOBALAMIN;FOLIC ACID;NICOTINAMI [Concomitant]
     Indication: Product used for unknown indication
     Dosage: TAKE ONE TABLET BY MOUTH EVERY EVENING
     Route: 048
  23. ZYRTEC [Concomitant]
     Active Substance: CETIRIZINE HYDROCHLORIDE
     Indication: Hypersensitivity
     Dosage: TAKE ONE TABLET BY MOUTH ONCE DAILY AS NEEDED FOR ALLERGIES ( SUMMER ALLERGY)
     Route: 048
  24. VITAMIN D3 [Concomitant]
     Active Substance: CHOLECALCIFEROL
     Indication: Product used for unknown indication
     Dosage: 600 MG-12.5 MCG  ( 500)UNIT CAP?TAKE ONE CAPSULE BY MOUTH 2TIMES DAILY ?125 MCG ( 5000 UNIT) TAKE 50
     Route: 048
  25. CEFIXIME [Concomitant]
     Active Substance: CEFIXIME
     Indication: Muscle spasms
     Dosage: TAKE ONE TABLET BY MOUTH ONCE DAILY AS NEEDED FOR MUSCLE SPASM( DURING DAILYSIS)
     Route: 048
  26. DECADRON [Concomitant]
     Active Substance: DEXAMETHASONE
     Indication: Product used for unknown indication
     Dosage: TAKE 5 TABLETS BY MOUTH TAKE WITH FOOD ON DAYS 8 22 EACH OF 28 DAYS CYCLE
     Route: 048
     Dates: start: 20230518
  27. FLONASE [Concomitant]
     Active Substance: FLUTICASONE PROPIONATE
     Indication: Hypersensitivity
     Dosage: 50 MCG /ACTUATION NASAL SPRAY?1-2 SPRAY BY EACH NARE ROUTE DAILY AS NEEDED FOR ALLERGIES
     Route: 045
  28. XALATAN [Concomitant]
     Active Substance: LATANOPROST
     Indication: Product used for unknown indication
     Dosage: PLACE ONE DROP INTO BOTH EYES EVERY NIGHT AT BED TIME BOTH EYES
     Dates: start: 20190501
  29. SYNTHROID [Concomitant]
     Active Substance: LEVOTHYROXINE SODIUM
     Indication: Product used for unknown indication
     Dosage: TAKE ONE TABLET BY MOUTH EVERY MORNING
     Route: 048
  30. PROAMATINE [Concomitant]
     Active Substance: MIDODRINE HYDROCHLORIDE
     Indication: Product used for unknown indication
     Dosage: 5 MG THREE TIMES A WEEK ON DIALYSIS DAYS TODAY
     Route: 048
  31. PRILOSEC [Concomitant]
     Active Substance: OMEPRAZOLE MAGNESIUM
     Indication: Product used for unknown indication
     Dosage: TAKE ONE CAPUSLE BY MOUTH EVERY MORNING
     Route: 048
  32. ZOFRAN [Concomitant]
     Active Substance: ONDANSETRON HYDROCHLORIDE
     Indication: Nausea
     Dosage: 8 MG DISINTEGRATING  AS NEEDED
     Route: 048
  33. ZOFRAN [Concomitant]
     Active Substance: ONDANSETRON HYDROCHLORIDE
  34. MIRALAX [Concomitant]
     Active Substance: POLYETHYLENE GLYCOL 3350
     Indication: Product used for unknown indication
     Dosage: 17 GRAM .DOSE POWDER
     Route: 048
  35. LYRICA [Concomitant]
     Active Substance: PREGABALIN
     Indication: Product used for unknown indication
     Dosage: TAKE 1-2 CAPSULES (1 CAP IN MORNING 2 CAP IN EVENING)?25-50MG
     Route: 048
     Dates: start: 20230809
  36. PERI-COLACE [DOCUSATE SODIUM;SENNOSIDE A+B] [Concomitant]
     Indication: Product used for unknown indication
     Dosage: 8.6-50MG PER TABLET?TAKE ONE TABLET BY MOUTH 2 TIMES DAILY
     Route: 048
  37. FLOMAX [Concomitant]
     Active Substance: TAMSULOSIN HYDROCHLORIDE
     Indication: Product used for unknown indication
     Dosage: TAKE ONE CAPSULE BY MOUTH EVERY EVENING
     Route: 048
  38. MS CONTIN [Concomitant]
     Active Substance: MORPHINE SULFATE
     Indication: Pain
     Dosage: 60 MG 12 HR AS NEEDED
     Route: 048
     Dates: start: 20230810
  39. LIDODERM [Concomitant]
     Active Substance: LIDOCAINE
     Dosage: 5% PATCH 1 PATCH
  40. NARCAN [Concomitant]
     Active Substance: NALOXONE HYDROCHLORIDE
  41. OMEPRAZOLE [Concomitant]
     Active Substance: OMEPRAZOLE
  42. TUMS [Concomitant]
     Active Substance: CALCIUM CARBONATE
     Dosage: 500-1000 MG
  43. MILK OF MAGNESIA [Concomitant]
     Active Substance: MAGNESIUM HYDROXIDE
     Dosage: 400 MG/5ML
     Route: 048
  44. MAXIPIME [Concomitant]
     Active Substance: CEFEPIME HYDROCHLORIDE
     Dosage: 1G IN DSW IVPB?500 MG IN NACL 0.9% 50 ML IVPB
  45. HEPARIN [Concomitant]
     Active Substance: HEPARIN SODIUM
     Dosage: SYRINGE 5000 UNITS
  46. MELATONIN [Concomitant]
     Active Substance: MELATONIN
     Dosage: 3-9 MG
  47. VANCOCIN [Concomitant]
     Active Substance: VANCOMYCIN HYDROCHLORIDE
     Dosage: 1250 MG IN NACL 0.9% 250 ML IVPB
  48. VANCOCIN [Concomitant]
     Active Substance: VANCOMYCIN HYDROCHLORIDE
     Route: 042
  49. PROVENTIL [Concomitant]
     Active Substance: ALBUTEROL
     Dosage: NEBULIZER SOL 2.5 MG
  50. ROCEPHIN [Concomitant]
     Active Substance: CEFTRIAXONE SODIUM
     Dosage: 2G IN 50 ML SNAP IVPB (0G IV STOPPED 14-AUG-2023)
  51. VIBRAMYCIN [Concomitant]
     Active Substance: DOXYCYCLINE
     Dosage: 100MG IN 100ML SNAP IVPB ( 0MG IV STOPPED 14-AUG-2023)
  52. ISATUXIMAB [Concomitant]
     Active Substance: ISATUXIMAB
     Indication: Product used for unknown indication
     Dates: start: 20230810
  53. CALCIUM CARBONATE\CHOLECALCIFEROL [Concomitant]
     Active Substance: CALCIUM CARBONATE\CHOLECALCIFEROL
     Indication: Product used for unknown indication
     Dosage: 600MG-12.5 MGC (500 UNIT) CAP TAKE ONE CAPSULE BY MOUTH 2 TIMES DAILY
     Route: 048

REACTIONS (16)
  - Pneumonia [Recovering/Resolving]
  - Infectious pleural effusion [Recovered/Resolved]
  - Atrial fibrillation [Unknown]
  - Chest pain [Unknown]
  - Pyrexia [Unknown]
  - Asthenia [Unknown]
  - Troponin increased [Unknown]
  - Tremor [Unknown]
  - Plasma cell myeloma [Unknown]
  - Hypotension [Unknown]
  - Atrial flutter [Unknown]
  - Thrombocytopenia [Unknown]
  - Leukopenia [Unknown]
  - Nausea [Unknown]
  - Atelectasis [Unknown]
  - Pneumonia aspiration [Unknown]

NARRATIVE: CASE EVENT DATE: 20210301
